FAERS Safety Report 20821574 (Version 2)
Quarter: 2022Q3

REPORT INFORMATION
  Report Type: Other
  Country: AU (occurrence: AU)
  Receive Date: 20220512
  Receipt Date: 20220915
  Transmission Date: 20221026
  Serious: Yes (Other)
  Sender: FDA-Public Use
  Company Number: AU-TOLMAR, INC.-22AU033540

PATIENT
  Sex: Male

DRUGS (1)
  1. ELIGARD [Suspect]
     Active Substance: LEUPROLIDE ACETATE
     Indication: Prostate cancer
     Dosage: 45 MILLIGRAM, Q 6 MONTH

REACTIONS (6)
  - Blindness [Unknown]
  - Cataract [Unknown]
  - Glaucoma [Unknown]
  - Prostate cancer [Not Recovered/Not Resolved]
  - Gout [Not Recovered/Not Resolved]
  - General physical health deterioration [Not Recovered/Not Resolved]
